FAERS Safety Report 7513979-6 (Version None)
Quarter: 2011Q2

REPORT INFORMATION
  Report Type: 
  Country: None (occurrence: None)
  Receive Date: 20110531
  Receipt Date: 20110519
  Transmission Date: 20111010
  Serious: Yes (Other)
  Sender: FDA-Public Use
  Company Number: US-UCBSA-019781

PATIENT
  Sex: Male
  Weight: 3.67 kg

DRUGS (5)
  1. FOLIC ACID [Concomitant]
     Indication: MEDICAL DIET
     Route: 064
  2. FROVA [Concomitant]
     Route: 064
  3. PRENATAL VITAMINS [Concomitant]
     Indication: PREGNANCY
     Dosage: 1 PILL
     Route: 064
  4. KEPPRA [Suspect]
     Route: 064
     Dates: start: 20100101, end: 20100827
  5. KEPPRA [Suspect]
     Indication: EPILEPSY
     Route: 064
     Dates: end: 20100101

REACTIONS (6)
  - PLAGIOCEPHALY [None]
  - TORTICOLLIS [None]
  - FOETAL HEART RATE ABNORMAL [None]
  - MACROCEPHALY [None]
  - DRUG EXPOSURE DURING PREGNANCY [None]
  - NEONATAL ASPIRATION [None]
